FAERS Safety Report 11668297 (Version 1)
Quarter: 2015Q4

REPORT INFORMATION
  Report Type: Spontaneous
  Country: US (occurrence: US)
  Receive Date: 20151027
  Receipt Date: 20151027
  Transmission Date: 20160304
  Serious: No
  Sender: FDA-Public Use
  Company Number: US-ELI_LILLY_AND_COMPANY-US201003004716

PATIENT
  Age: 57 Year
  Sex: Female

DRUGS (1)
  1. FORTEO [Suspect]
     Active Substance: TERIPARATIDE
     Indication: OSTEOPOROSIS
     Dosage: 20 UG, UNK
     Dates: start: 2009

REACTIONS (5)
  - Muscular weakness [Unknown]
  - Fall [Unknown]
  - Ataxia [Unknown]
  - Pain in extremity [Unknown]
  - Ligament sprain [Unknown]

NARRATIVE: CASE EVENT DATE: 20100311
